FAERS Safety Report 7934098-0 (Version None)
Quarter: 2011Q4

REPORT INFORMATION
  Report Type: 
  Country: None (occurrence: None)
  Receive Date: 20111122
  Receipt Date: 20110802
  Transmission Date: 20120403
  Serious: No
  Sender: FDA-Public Use
  Company Number: US-BAYER-2011-068629

PATIENT
  Age: 66 Year
  Sex: Male

DRUGS (17)
  1. CENTRUM SILVER [Concomitant]
  2. METFORMIN HCL [Concomitant]
  3. JANUMET [Concomitant]
  4. GARLIC [Concomitant]
  5. ASPIRIN [Concomitant]
  6. LOVAZA [Concomitant]
  7. LISINOPRIL [Concomitant]
  8. LANTUS [Concomitant]
  9. ANDROGEL [Concomitant]
  10. LEVITRA [Suspect]
     Indication: ERECTILE DYSFUNCTION
     Dosage: 10 MG, QD
     Route: 048
     Dates: start: 20110731, end: 20110731
  11. SIMVASTATIN [Concomitant]
  12. CIALIS [Concomitant]
  13. PANTOPRAZOLE SODIUM [Concomitant]
  14. ASCORBIC ACID [Concomitant]
  15. VITAMIN D [Concomitant]
  16. AMLODIPINE BESYLATE [Concomitant]
  17. GLIPIZIDE [Concomitant]

REACTIONS (1)
  - DRUG INEFFECTIVE [None]
